FAERS Safety Report 4618267-3 (Version None)
Quarter: 2005Q1

REPORT INFORMATION
  Report Type: 
  Country: None (occurrence: None)
  Receive Date: 20050323
  Receipt Date: 20050228
  Transmission Date: 20050727
  Serious: Yes (Death, Hospitalization)
  Sender: FDA-Public Use
  Company Number: WAES 0503GBR00066

PATIENT
  Age: 2 Year
  Sex: Male

DRUGS (2)
  1. DECADRON [Suspect]
     Indication: ACUTE LYMPHOCYTIC LEUKAEMIA
     Dosage: 6.5  MG/M [2]/DAILY PO
     Route: 048
  2. VINCRISTINE SULFATE [Suspect]
     Indication: ACUTE LYMPHOCYTIC LEUKAEMIA
     Dosage: 1.5 MG/M[2]/1X

REACTIONS (21)
  - ADENOVIRAL HEPATITIS [None]
  - ADENOVIRUS INFECTION [None]
  - ASCITES [None]
  - B-LYMPHOCYTE COUNT DECREASED [None]
  - CELL-MEDIATED IMMUNE DEFICIENCY [None]
  - COAGULOPATHY [None]
  - CONVULSION [None]
  - DIARRHOEA [None]
  - EPIDERMAL NECROSIS [None]
  - GENERAL PHYSICAL HEALTH DETERIORATION [None]
  - HEPATIC ENCEPHALOPATHY [None]
  - HEPATIC FAILURE [None]
  - HEPATOMEGALY [None]
  - HEPATOSPLENOMEGALY [None]
  - LYMPHOPENIA [None]
  - PANCYTOPENIA [None]
  - PRODUCTIVE COUGH [None]
  - PYREXIA [None]
  - RASH VESICULAR [None]
  - SCAN ABDOMEN ABNORMAL [None]
  - VENOOCCLUSIVE LIVER DISEASE [None]
